FAERS Safety Report 25297521 (Version 1)
Quarter: 2025Q2

REPORT INFORMATION
  Report Type: Spontaneous
  Country: US (occurrence: US)
  Receive Date: 20250511
  Receipt Date: 20250511
  Transmission Date: 20250716
  Serious: Yes (Other)
  Sender: JOHNSON AND JOHNSON
  Company Number: US-JNJFOC-20250500312

PATIENT
  Age: 27 Year
  Sex: Male

DRUGS (4)
  1. CONCERTA [Suspect]
     Active Substance: METHYLPHENIDATE HYDROCHLORIDE
     Indication: Product used for unknown indication
     Route: 048
  2. LUMRYZ [Suspect]
     Active Substance: SODIUM OXYBATE
     Indication: Product used for unknown indication
     Dosage: NIGHTLY
     Route: 048
  3. LUMRYZ [Suspect]
     Active Substance: SODIUM OXYBATE
     Dosage: NIGHTLY
     Route: 048
     Dates: start: 202503, end: 202504
  4. LUMRYZ [Suspect]
     Active Substance: SODIUM OXYBATE
     Dosage: NIGHTLY
     Route: 048

REACTIONS (12)
  - Cataplexy [Unknown]
  - Fatigue [Unknown]
  - Terminal insomnia [Unknown]
  - Insomnia [Unknown]
  - Asthenia [Unknown]
  - Feeling jittery [Unknown]
  - Nervousness [Unknown]
  - Headache [Unknown]
  - Nausea [Unknown]
  - Peripheral swelling [Unknown]
  - Pain [Unknown]
  - Enuresis [Unknown]

NARRATIVE: CASE EVENT DATE: 20250301
